FAERS Safety Report 4939973-7 (Version None)
Quarter: 2006Q1

REPORT INFORMATION
  Report Type: 
  Country: None (occurrence: None)
  Receive Date: 20060307
  Receipt Date: 20060221
  Transmission Date: 20060701
  Serious: Yes (Hospitalization)
  Sender: FDA-Public Use
  Company Number: MEDI-0004140

PATIENT
  Age: 2 Month
  Sex: Female
  Weight: 3.23 kg

DRUGS (4)
  1. SYNAGIS [Suspect]
     Indication: ANTIVIRAL PROPHYLAXIS
     Dosage: 50 MG, 1 IN 30 D, INTRAMUSCULAR
     Route: 030
     Dates: start: 20051019, end: 20051019
  2. FERRIC PYROPHOSPHATE (FERRIC PYROPHOSPHATE) [Concomitant]
  3. CLOSTRIDIUM BUTYRICUM [Concomitant]
  4. EKSALB (BACTERIA NOS) [Concomitant]

REACTIONS (1)
  - ERYTHEMA MULTIFORME [None]
